FAERS Safety Report 8014140-1 (Version None)
Quarter: 2011Q4

REPORT INFORMATION
  Report Type: 
  Country: None (occurrence: None)
  Receive Date: 20111229
  Receipt Date: 20111220
  Transmission Date: 20120403
  Serious: Yes (Hospitalization, Disabling, Other)
  Sender: FDA-Public Use
  Company Number: BR-ASTRAZENECA-2011SE52412

PATIENT
  Age: 79 Year
  Sex: Female
  Weight: 73 kg

DRUGS (4)
  1. CALCIUM ACETATE [Concomitant]
     Route: 048
     Dates: start: 20110101
  2. ATACAND HCT [Suspect]
     Dosage: 16/2.5 MG
     Route: 048
     Dates: start: 20110701
  3. ATACAND [Suspect]
     Indication: HYPERTENSION
     Route: 048
     Dates: start: 20080101, end: 20110701
  4. VYTORIN [Concomitant]
     Indication: BLOOD CHOLESTEROL INCREASED
     Route: 048
     Dates: start: 20080101

REACTIONS (8)
  - LUNG NEOPLASM [None]
  - DECREASED APPETITE [None]
  - MASTICATION DISORDER [None]
  - DRUG INEFFECTIVE [None]
  - JOINT RANGE OF MOTION DECREASED [None]
  - ASTHENIA [None]
  - INTERVERTEBRAL DISC PROTRUSION [None]
  - BLOOD PRESSURE INADEQUATELY CONTROLLED [None]
